FAERS Safety Report 7358235-4 (Version None)
Quarter: 2011Q1

REPORT INFORMATION
  Report Type: 
  Country: None (occurrence: None)
  Receive Date: 20110317
  Receipt Date: 20110314
  Transmission Date: 20110831
  Serious: Yes (Other)
  Sender: FDA-Public Use
  Company Number: US-AMGEN-USASP2011014115

PATIENT
  Age: 25 Year
  Sex: Female

DRUGS (1)
  1. NPLATE [Suspect]
     Indication: IDIOPATHIC THROMBOCYTOPENIC PURPURA
     Dosage: UNK
     Dates: start: 20101210, end: 20110307

REACTIONS (5)
  - PHARYNGEAL OEDEMA [None]
  - OEDEMA PERIPHERAL [None]
  - HEADACHE [None]
  - SWELLING FACE [None]
  - LOCAL SWELLING [None]
